FAERS Safety Report 18880487 (Version 2)
Quarter: 2021Q2

REPORT INFORMATION
  Report Type: Spontaneous
  Country: US (occurrence: US)
  Receive Date: 20210211
  Receipt Date: 20210401
  Transmission Date: 20210717
  Serious: Yes (Other)
  Sender: FDA-Public Use
  Company Number: US-BAYER-2021-060262

PATIENT
  Age: 33 Year
  Sex: Male

DRUGS (3)
  1. KOGENATE FS [Suspect]
     Active Substance: ANTIHEMOPHILIC FACTOR, HUMAN RECOMBINANT
     Dosage: 1 DF, ONCE, EXTRA PROPHY DOSE FOR RIGHT KNEE BLEED
     Route: 042
     Dates: start: 20210317, end: 20210317
  2. KOGENATE FS [Suspect]
     Active Substance: ANTIHEMOPHILIC FACTOR, HUMAN RECOMBINANT
     Dosage: 4000 U
     Route: 042
  3. KOGENATE FS [Suspect]
     Active Substance: ANTIHEMOPHILIC FACTOR, HUMAN RECOMBINANT
     Dosage: 1 DF, ONCE, TO RESOLVE THE BLEED
     Route: 042
     Dates: start: 20200130, end: 20200130

REACTIONS (4)
  - Traumatic haemorrhage [Recovered/Resolved]
  - Haemarthrosis [Recovered/Resolved]
  - Fall [Recovered/Resolved]
  - Limb injury [Recovered/Resolved]

NARRATIVE: CASE EVENT DATE: 20210130
